FAERS Safety Report 9461369 (Version 2)
Quarter: 2013Q3

REPORT INFORMATION
  Report Type: Spontaneous
  Country: US (occurrence: US)
  Receive Date: 20130816
  Receipt Date: 20130917
  Transmission Date: 20140515
  Serious: No
  Sender: FDA-Public Use
  Company Number: US-PFIZER INC-2013237768

PATIENT
  Age: 52 Year
  Sex: Female
  Weight: 83.9 kg

DRUGS (15)
  1. XANAX [Suspect]
     Dosage: 0.5 MG, 3X/DAY
  2. XANAX [Suspect]
     Dosage: 0.5 MG, AS NEEDED
  3. PRISTIQ [Suspect]
     Indication: ANXIETY
     Dosage: 50 MG, DAILY
  4. PROTONIX [Suspect]
     Indication: GASTROOESOPHAGEAL REFLUX DISEASE
     Dosage: 40 MG, DAILY
  5. OMEPRAZOLE [Suspect]
     Indication: DYSPEPSIA
     Dosage: UNK
  6. PROZAC [Suspect]
     Indication: ANXIETY
     Dosage: UNK
  7. LIPITOR [Concomitant]
     Dosage: 80 MG, DAILY
  8. ATENOLOL [Concomitant]
     Dosage: 50 MG, 2X/DAY
  9. EFFIENT [Concomitant]
     Dosage: 40 MG, DAILY
  10. IMDUR [Concomitant]
     Dosage: 100 MG, DAILY
  11. LISINOPRIL [Concomitant]
     Dosage: 40 MG, DAILY
  12. ASPIRIN [Concomitant]
     Dosage: 81 MG, DAILY
  13. TRILIPIX [Concomitant]
     Dosage: 135 MG, DAILY
  14. VITAMIN D [Concomitant]
     Dosage: 400 UNITS DAILY AND EXTRA 50000 UNITS MONTHLY
  15. CALCIUM [Concomitant]
     Dosage: 2000 MG, DAILY

REACTIONS (4)
  - Pain [Unknown]
  - Dyspepsia [Unknown]
  - Drug withdrawal syndrome [Unknown]
  - Off label use [Unknown]
